FAERS Safety Report 9017077 (Version 2)
Quarter: 2013Q1

REPORT INFORMATION
  Report Type: Report from Study
  Country: AU (occurrence: AU)
  Receive Date: 20130117
  Receipt Date: 20130301
  Transmission Date: 20140127
  Serious: Yes (Death, Life-Threatening, Other)
  Sender: FDA-Public Use
  Company Number: PHHY2013AU003790

PATIENT
  Sex: Male

DRUGS (1)
  1. CLOZARIL [Suspect]
     Dosage: 500 MG, UNK
     Dates: start: 19960527

REACTIONS (6)
  - Heat stroke [Fatal]
  - Dehydration [Fatal]
  - Blood potassium decreased [Fatal]
  - Myocardial infarction [Fatal]
  - Aortic valve incompetence [Unknown]
  - Neutrophil count increased [Unknown]
